FAERS Safety Report 13667923 (Version 1)
Quarter: 2017Q2

REPORT INFORMATION
  Report Type: Spontaneous
  Country: US (occurrence: US)
  Receive Date: 20170620
  Receipt Date: 20170620
  Transmission Date: 20170830
  Serious: Yes (Hospitalization, Other)
  Sender: FDA-Public Use
  Company Number: US-APOTEX-2017AP013165

PATIENT
  Age: 56 Year
  Sex: Female

DRUGS (1)
  1. DESMOPRESSIN ACETATE. [Suspect]
     Active Substance: DESMOPRESSIN ACETATE
     Indication: EPISTAXIS
     Route: 065

REACTIONS (6)
  - Confusional state [Recovered/Resolved]
  - Oral contusion [Recovering/Resolving]
  - Fluid retention [Recovering/Resolving]
  - Hyponatraemic seizure [Recovering/Resolving]
  - Urine sodium increased [Recovering/Resolving]
  - Hallucination, visual [Recovered/Resolved]
